FAERS Safety Report 4939086-4 (Version None)
Quarter: 2006Q1

REPORT INFORMATION
  Report Type: 
  Country: None (occurrence: None)
  Receive Date: 20060306
  Receipt Date: 20060222
  Transmission Date: 20060701
  Serious: Yes (Other)
  Sender: FDA-Public Use
  Company Number: 2006026175

PATIENT
  Sex: Female

DRUGS (1)
  1. VISINE-A [Suspect]
     Indication: OCULAR HYPERAEMIA
     Dosage: ONE DROP IN EACH EYE TWICE DAILY, OPHTHALMIC
     Route: 047
     Dates: start: 20060201, end: 20060221

REACTIONS (3)
  - CONDITION AGGRAVATED [None]
  - DRUG DEPENDENCE [None]
  - OCULAR HYPERAEMIA [None]
